FAERS Safety Report 4973952-9 (Version None)
Quarter: 2006Q2

REPORT INFORMATION
  Report Type: 
  Country: None (occurrence: None)
  Receive Date: 20060410
  Receipt Date: 20060330
  Transmission Date: 20061013
  Serious: Yes (Hospitalization, Other)
  Sender: FDA-Public Use
  Company Number: HQWYE397217MAR06

PATIENT
  Age: 74 Year
  Sex: Male

DRUGS (8)
  1. ROFERON-A [Suspect]
     Indication: RENAL CELL CARCINOMA STAGE UNSPECIFIED
     Dosage: 6 + 4.5 MU 3 TIMES/WEEK - SEE IMAGE
     Dates: start: 20041228, end: 20060313
  2. ROFERON-A [Suspect]
     Indication: RENAL CELL CARCINOMA STAGE UNSPECIFIED
     Dosage: 6 + 4.5 MU 3 TIMES/WEEK - SEE IMAGE
     Dates: start: 20060322
  3. ACCUPRO 9QUINAPRIL HYDROCHLORIDE) [Concomitant]
  4. TRAMADOL HCL [Concomitant]
  5. AMIODARONE HCL [Concomitant]
  6. ASPIRIN [Concomitant]
  7. DICLOFENAC (DICLOFENAC) [Concomitant]
  8. BISOPROLOL FUMARATE [Concomitant]

REACTIONS (6)
  - ATRIAL FIBRILLATION [None]
  - BLOOD CHLORIDE DECREASED [None]
  - BLOOD CREATINE INCREASED [None]
  - HAEMOGLOBIN DECREASED [None]
  - PLATELET COUNT DECREASED [None]
  - RED BLOOD CELL COUNT DECREASED [None]
